FAERS Safety Report 22331783 (Version 3)
Quarter: 2024Q2

REPORT INFORMATION
  Report Type: Other
  Country: US (occurrence: None)
  Receive Date: 20230517
  Receipt Date: 20240415
  Transmission Date: 20240716
  Serious: No
  Sender: FDA-Public Use
  Company Number: US-ROCHE-2868449

PATIENT
  Age: 77 Year
  Sex: Female

DRUGS (7)
  1. ACTEMRA [Suspect]
     Active Substance: TOCILIZUMAB
     Indication: Polymyalgia rheumatica
     Dosage: FREQUENCY: EVERY 2 WEEKS
     Route: 058
     Dates: start: 202106
  2. ACTEMRA [Suspect]
     Active Substance: TOCILIZUMAB
     Indication: COVID-19
  3. BREO ELLIPTA [Suspect]
     Active Substance: FLUTICASONE FUROATE\VILANTEROL TRIFENATATE
     Indication: Product used for unknown indication
     Dosage: 100MG/25MCG
     Route: 065
  4. ACTEMRA [Suspect]
     Active Substance: TOCILIZUMAB
     Indication: Polymyalgia rheumatica
     Route: 058
  5. ACTEMRA [Suspect]
     Active Substance: TOCILIZUMAB
     Indication: Autoimmune disorder
     Route: 058
  6. ACTEMRA [Suspect]
     Active Substance: TOCILIZUMAB
     Indication: COVID-19
  7. ALBUTEROL [Concomitant]
     Active Substance: ALBUTEROL
     Indication: Respiratory tract infection
     Dosage: 1-2 PUFFS AS NEEDED
     Route: 055

REACTIONS (35)
  - Hyperhidrosis [Unknown]
  - Fatigue [Unknown]
  - Memory impairment [Unknown]
  - Swelling face [Unknown]
  - Abdominal pain [Unknown]
  - Haemangioma [Unknown]
  - Arthralgia [Unknown]
  - Upper-airway cough syndrome [Unknown]
  - Hypersensitivity [Unknown]
  - Blood cholesterol increased [Unknown]
  - Headache [Recovered/Resolved]
  - High density lipoprotein increased [Unknown]
  - Sinusitis [Unknown]
  - Memory impairment [Not Recovered/Not Resolved]
  - Fatigue [Unknown]
  - Hair texture abnormal [Unknown]
  - Gingival disorder [Unknown]
  - Hepatic enzyme increased [Unknown]
  - Oropharyngeal pain [Not Recovered/Not Resolved]
  - Pharyngitis [Unknown]
  - Off label use [Unknown]
  - Gastrooesophageal reflux disease [Unknown]
  - Osteoarthritis [Unknown]
  - Asthma [Unknown]
  - Choking [Unknown]
  - Circumstance or information capable of leading to medication error [Unknown]
  - Abdominal pain [Unknown]
  - Arthralgia [Recovering/Resolving]
  - Pain [Recovering/Resolving]
  - Osteoporosis [Not Recovered/Not Resolved]
  - Ill-defined disorder [Not Recovered/Not Resolved]
  - Nasopharyngitis [Unknown]
  - Rhinorrhoea [Unknown]
  - Pneumonitis [Unknown]
  - Respiratory tract haemorrhage [Unknown]

NARRATIVE: CASE EVENT DATE: 20230101
